FAERS Safety Report 12700275 (Version 1)
Quarter: 2016Q3

REPORT INFORMATION
  Report Type: Spontaneous
  Country: US (occurrence: US)
  Receive Date: 20160830
  Receipt Date: 20160830
  Transmission Date: 20161109
  Serious: No
  Sender: FDA-Public Use
  Company Number: US-SA-2015SA131022

PATIENT
  Age: 48 Year
  Sex: Female
  Weight: 63.5 kg

DRUGS (14)
  1. CLARITIN [Concomitant]
     Active Substance: LORATADINE
  2. TYLENOL [Concomitant]
     Active Substance: ACETAMINOPHEN
     Indication: PREMEDICATION
     Dosage: DOSE: 650
     Route: 048
     Dates: start: 20090127
  3. DIAZEPAM. [Concomitant]
     Active Substance: DIAZEPAM
  4. VALIUM [Concomitant]
     Active Substance: DIAZEPAM
  5. FABRAZYME [Suspect]
     Active Substance: AGALSIDASE BETA
     Indication: FABRY^S DISEASE
     Dosage: FREQUENCY-Q 10-14 DAYS
     Route: 041
     Dates: start: 20120904
  6. AMBIEN [Concomitant]
     Active Substance: ZOLPIDEM TARTRATE
  7. BENADRYL [Concomitant]
     Active Substance: DIPHENHYDRAMINE HYDROCHLORIDE
     Indication: PREMEDICATION
     Dosage: DOSE:50
     Route: 042
     Dates: start: 20090127
  8. OXYCODONE [Concomitant]
     Active Substance: OXYCODONE
     Route: 048
  9. LEVOXYL [Concomitant]
     Active Substance: LEVOTHYROXINE SODIUM
  10. ALEVE [Concomitant]
     Active Substance: NAPROXEN SODIUM
  11. ADVIL [Concomitant]
     Active Substance: IBUPROFEN
  12. SOLU-MEDROL [Concomitant]
     Active Substance: METHYLPREDNISOLONE SODIUM SUCCINATE
     Indication: PREMEDICATION
     Route: 042
     Dates: start: 20090127
  13. FABRAZYME [Suspect]
     Active Substance: AGALSIDASE BETA
     Indication: FABRY^S DISEASE
     Route: 041
     Dates: start: 20090127, end: 20120824
  14. NORTRIPTYLINE [Concomitant]
     Active Substance: NORTRIPTYLINE

REACTIONS (23)
  - Sinusitis [Unknown]
  - Red cell distribution width increased [Unknown]
  - Ear pain [Recovered/Resolved]
  - Pyrexia [Unknown]
  - Monocyte count decreased [Unknown]
  - Swelling face [Recovering/Resolving]
  - Sinus congestion [Unknown]
  - Blood creatinine increased [Unknown]
  - Vertigo positional [Unknown]
  - Asthenia [Unknown]
  - Pain in extremity [Unknown]
  - Paraesthesia [Unknown]
  - Arthralgia [Unknown]
  - Diarrhoea [Unknown]
  - Headache [Unknown]
  - Abdominal discomfort [Recovered/Resolved]
  - Fatigue [Unknown]
  - Pain [Unknown]
  - Diplopia [Unknown]
  - Glomerular filtration rate decreased [Unknown]
  - Blood glucose increased [Unknown]
  - Ear discomfort [Unknown]
  - Dizziness [Unknown]

NARRATIVE: CASE EVENT DATE: 200902
